FAERS Safety Report 22537053 (Version 1)
Quarter: 2023Q2

REPORT INFORMATION
  Report Type: Spontaneous
  Country: US (occurrence: US)
  Receive Date: 20230608
  Receipt Date: 20230608
  Transmission Date: 20230722
  Serious: Yes (Other)
  Sender: FDA-Public Use
  Company Number: US-BRISTOL-MYERS SQUIBB COMPANY-2023-080956

PATIENT
  Age: 45 Year
  Sex: Male
  Weight: 84.82 kg

DRUGS (3)
  1. REVLIMID [Suspect]
     Active Substance: LENALIDOMIDE
     Indication: Plasma cell myeloma
     Route: 048
  2. NINLARO [Concomitant]
     Active Substance: IXAZOMIB CITRATE
     Indication: Product used for unknown indication
     Dosage: TAKE ONE (1) CAPSULE BY MOUTH ON DAYS 1, 8 AND ?15 OF A 28 DAY CYCLE. TAKE 1 HOUR BEFORE OR 2 ?HOURS
     Route: 048
  3. ONDANSETRON [Concomitant]
     Active Substance: ONDANSETRON
     Indication: Nausea
     Dosage: DISSOLVE ONE TABLET BY MOUTH EVERY 8 HOURS AS NEEDED FOR NAUSEA
     Route: 048

REACTIONS (2)
  - Thrombocytopenia [Recovering/Resolving]
  - Neutropenia [Recovering/Resolving]
